FAERS Safety Report 5208640-7 (Version None)
Quarter: 2007Q1

REPORT INFORMATION
  Report Type: 
  Country: None (occurrence: None)
  Receive Date: 20070116
  Receipt Date: 20070103
  Transmission Date: 20070707
  Serious: Yes (Death, Hospitalization, Other)
  Sender: FDA-Public Use
  Company Number: PHBS2007CN00571

PATIENT
  Age: 54 Year
  Sex: Female

DRUGS (1)
  1. CYCLOSPORINE [Suspect]
     Indication: LIVER TRANSPLANT
     Dosage: 100 MG, Q12H
     Route: 065

REACTIONS (11)
  - ABDOMINAL PAIN [None]
  - DIARRHOEA [None]
  - GASTRIC ULCER [None]
  - GRAFT VERSUS HOST DISEASE [None]
  - LARGE INTESTINAL ULCER [None]
  - LYMPHOCYTIC INFILTRATION [None]
  - MULTI-ORGAN FAILURE [None]
  - OESOPHAGEAL ULCER [None]
  - PYREXIA [None]
  - RASH [None]
  - STAPHYLOCOCCAL INFECTION [None]
